FAERS Safety Report 5473763-4 (Version None)
Quarter: 2007Q3

REPORT INFORMATION
  Report Type: 
  Country: None (occurrence: None)
  Receive Date: 20070831
  Receipt Date: 20070612
  Transmission Date: 20080115
  Serious: No
  Sender: FDA-Public Use
  Company Number: 241495

PATIENT
  Age: 81 Year
  Sex: Male
  Weight: 117.9 kg

DRUGS (2)
  1. LUCENTIS [Suspect]
     Indication: MACULAR DEGENERATION
     Dosage: Q6W, INTRAVITREAL
  2. EYE VITAMIN (VITAMINS NOS) [Concomitant]

REACTIONS (1)
  - VISUAL DISTURBANCE [None]
